FAERS Safety Report 24118279 (Version 2)
Quarter: 2024Q3

REPORT INFORMATION
  Report Type: Spontaneous
  Country: US (occurrence: US)
  Receive Date: 20240722
  Receipt Date: 20240821
  Transmission Date: 20241017
  Serious: Yes (Hospitalization, Other)
  Sender: MERCK
  Company Number: US-009507513-2407USA009430

PATIENT
  Sex: Male

DRUGS (5)
  1. KEYTRUDA [Suspect]
     Active Substance: PEMBROLIZUMAB
     Indication: Hodgkin^s disease
     Dosage: UNK UNK, EVERY 6 WEEKS
     Route: 042
     Dates: start: 202403, end: 2024
  2. KEYTRUDA [Suspect]
     Active Substance: PEMBROLIZUMAB
     Dosage: UNK UNK, EVERY 6 WEEKS
     Route: 042
     Dates: start: 20240710
  3. KEYTRUDA [Suspect]
     Active Substance: PEMBROLIZUMAB
     Dosage: UNK
     Dates: start: 20240722, end: 20240722
  4. FLONASE [Concomitant]
     Active Substance: FLUTICASONE PROPIONATE
  5. ALLEGRA [Concomitant]
     Active Substance: FEXOFENADINE HYDROCHLORIDE

REACTIONS (10)
  - Bacterial sepsis [Recovering/Resolving]
  - Hospitalisation [Recovered/Resolved]
  - Asthenia [Recovered/Resolved]
  - Pyrexia [Recovering/Resolving]
  - Lymph nodes scan abnormal [Recovering/Resolving]
  - Disorientation [Recovering/Resolving]
  - Pruritus [Recovered/Resolved]
  - Rash [Unknown]
  - Pruritus [Unknown]
  - Inappropriate schedule of product administration [Unknown]

NARRATIVE: CASE EVENT DATE: 20240101
